FAERS Safety Report 9744227 (Version 2)
Quarter: 2013Q4

REPORT INFORMATION
  Report Type: Spontaneous
  Country: US (occurrence: US)
  Receive Date: 20131210
  Receipt Date: 20131231
  Transmission Date: 20140711
  Serious: No
  Sender: FDA-Public Use
  Company Number: US-BIOGENIDEC-2013BI101170

PATIENT
  Age: 56 Year
  Sex: Female

DRUGS (6)
  1. TECFIDERA [Suspect]
     Indication: MULTIPLE SCLEROSIS
     Route: 048
     Dates: start: 20130831, end: 20130925
  2. TECFIDERA [Suspect]
     Indication: MULTIPLE SCLEROSIS
     Route: 048
     Dates: start: 201310
  3. TECFIDERA [Suspect]
     Indication: MULTIPLE SCLEROSIS
     Route: 048
  4. TECFIDERA [Suspect]
     Indication: MULTIPLE SCLEROSIS
     Route: 048
     Dates: start: 20131118
  5. AMPYRA [Concomitant]
  6. PROVIGIL [Concomitant]

REACTIONS (4)
  - Incontinence [Not Recovered/Not Resolved]
  - Myalgia [Not Recovered/Not Resolved]
  - Underdose [Unknown]
  - Diarrhoea [Not Recovered/Not Resolved]
